FAERS Safety Report 21338811 (Version 2)
Quarter: 2022Q3

REPORT INFORMATION
  Report Type: Spontaneous
  Country: JP (occurrence: JP)
  Receive Date: 20220915
  Receipt Date: 20220926
  Transmission Date: 20221027
  Serious: Yes (Hospitalization, Other)
  Sender: FDA-Public Use
  Company Number: JP-SYMBIO-202200403

PATIENT
  Age: 65 Year
  Sex: Male
  Weight: 74 kg

DRUGS (13)
  1. BENDAMUSTINE HYDROCHLORIDE [Suspect]
     Active Substance: BENDAMUSTINE HYDROCHLORIDE
     Indication: Follicular lymphoma
     Dosage: (1ST CYCLE ON DAY 1 AND 2)
     Route: 041
     Dates: start: 20191009, end: 20191010
  2. BENDAMUSTINE HYDROCHLORIDE [Suspect]
     Active Substance: BENDAMUSTINE HYDROCHLORIDE
     Dosage: (2ND CYCLE)
     Route: 041
     Dates: start: 20191117, end: 20191118
  3. BENDAMUSTINE HYDROCHLORIDE [Suspect]
     Active Substance: BENDAMUSTINE HYDROCHLORIDE
     Dosage: (3RD CYCLE)
     Route: 041
     Dates: start: 20191205, end: 20191206
  4. BENDAMUSTINE HYDROCHLORIDE [Suspect]
     Active Substance: BENDAMUSTINE HYDROCHLORIDE
     Dosage: (4TH CYCLE)
     Route: 041
     Dates: start: 20200109, end: 20200110
  5. BENDAMUSTINE HYDROCHLORIDE [Suspect]
     Active Substance: BENDAMUSTINE HYDROCHLORIDE
     Dosage: (5TH CYCLE)
     Route: 041
     Dates: start: 20200213, end: 20200214
  6. BENDAMUSTINE HYDROCHLORIDE [Suspect]
     Active Substance: BENDAMUSTINE HYDROCHLORIDE
     Dosage: (6TH CYCLE)
     Route: 041
     Dates: start: 20200318, end: 20200319
  7. GAZYVA [Suspect]
     Active Substance: OBINUTUZUMAB
     Indication: Follicular lymphoma
     Dosage: UNK UNK, CYCLIC (1ST CYCLE ON DAY 10, 17 AND 24)
     Route: 065
     Dates: start: 20191009
  8. GAZYVA [Suspect]
     Active Substance: OBINUTUZUMAB
     Dosage: UNK UNK, CYCLIC (2ND CYCLE)
     Route: 065
     Dates: start: 20191117
  9. GAZYVA [Suspect]
     Active Substance: OBINUTUZUMAB
     Dosage: UNK UNK, CYCLIC (3RD CYCLE)
     Route: 065
     Dates: start: 20191205
  10. GAZYVA [Suspect]
     Active Substance: OBINUTUZUMAB
     Dosage: UNK UNK, CYCLIC (4TH CYCLE)
     Route: 065
     Dates: start: 20200109
  11. GAZYVA [Suspect]
     Active Substance: OBINUTUZUMAB
     Dosage: UNK UNK, CYCLIC (5TH CYCLE)
     Route: 065
     Dates: start: 20200213
  12. GAZYVA [Suspect]
     Active Substance: OBINUTUZUMAB
     Dosage: UNK UNK, CYCLIC (6TH CYCLE)
     Route: 065
     Dates: start: 20200318
  13. GAZYVA [Suspect]
     Active Substance: OBINUTUZUMAB
     Dosage: 1000 MG, ONCE DAILY (MAINTENANCE THERAPY PERFORMED)
     Route: 041
     Dates: end: 202010

REACTIONS (3)
  - COVID-19 pneumonia [Recovered/Resolved]
  - Hypogammaglobulinaemia [Not Recovered/Not Resolved]
  - T-lymphocyte count decreased [Not Recovered/Not Resolved]

NARRATIVE: CASE EVENT DATE: 20200101
